FAERS Safety Report 9656900 (Version 1)
Quarter: 2013Q4

REPORT INFORMATION
  Report Type: Spontaneous
  Country: CA (occurrence: CA)
  Receive Date: 20131030
  Receipt Date: 20131030
  Transmission Date: 20140711
  Serious: Yes (Hospitalization, Other)
  Sender: FDA-Public Use
  Company Number: PHHY2013CA119335

PATIENT
  Age: 28 Year
  Sex: Female

DRUGS (3)
  1. OXYTOCIN [Suspect]
     Route: 042
  2. LABETALOL [Suspect]
     Indication: BLOOD PRESSURE MANAGEMENT
     Dosage: 400 MG, TID
  3. MAGNESIUM SULFATE [Suspect]
     Indication: PRE-ECLAMPSIA
     Dosage: 40 G, UNK
     Route: 042

REACTIONS (19)
  - Depressed level of consciousness [Recovered/Resolved]
  - Somnolence [Recovered/Resolved]
  - Unresponsive to stimuli [Recovered/Resolved]
  - Respiratory arrest [Recovered/Resolved]
  - Neurological decompensation [Recovered/Resolved]
  - Respiratory rate decreased [Recovered/Resolved]
  - Dyspnoea [Recovered/Resolved]
  - Hypoventilation [Recovered/Resolved]
  - Oxygen saturation decreased [Recovered/Resolved]
  - Toxicity to various agents [Recovered/Resolved]
  - Postpartum haemorrhage [Recovered/Resolved]
  - Perineal injury [Recovered/Resolved]
  - Uterine atony [Recovered/Resolved]
  - Thrombosis [Recovered/Resolved]
  - Wrong drug administered [Unknown]
  - Pericardial effusion [Recovered/Resolved]
  - Heart rate increased [Recovered/Resolved]
  - Blood pressure decreased [Recovered/Resolved]
  - Maternal exposure during pregnancy [Unknown]
